FAERS Safety Report 10167534 (Version 1)
Quarter: 2014Q2

REPORT INFORMATION
  Report Type: Spontaneous
  Country: JP (occurrence: JP)
  Receive Date: 20140512
  Receipt Date: 20140512
  Transmission Date: 20141212
  Serious: Yes (Other)
  Sender: FDA-Public Use
  Company Number: JP-JNJFOC-20140505061

PATIENT
  Age: 70 Year
  Sex: Female

DRUGS (3)
  1. SOVRIAD [Suspect]
     Indication: CHRONIC HEPATITIS C
     Route: 048
     Dates: start: 20131227, end: 2014
  2. PEGINTRON [Concomitant]
     Indication: CHRONIC HEPATITIS C
     Route: 058
     Dates: start: 20131227
  3. REBETOL [Concomitant]
     Indication: CHRONIC HEPATITIS C
     Route: 048
     Dates: start: 20131227

REACTIONS (1)
  - Hepatic function abnormal [Recovered/Resolved]
